FAERS Safety Report 5794824-6 (Version None)
Quarter: 2008Q2

REPORT INFORMATION
  Report Type: 
  Country: None (occurrence: None)
  Receive Date: 20080630
  Receipt Date: 20080617
  Transmission Date: 20081010
  Serious: Yes (Hospitalization)
  Sender: FDA-Public Use
  Company Number: B0506304A

PATIENT
  Age: 37 Year
  Sex: Male

DRUGS (5)
  1. MUPIDERM [Suspect]
     Indication: FURUNCLE
     Dosage: 2APP PER DAY
     Route: 061
     Dates: start: 20071101, end: 20071103
  2. ORBENINE [Suspect]
     Indication: FURUNCLE
     Dosage: 1G THREE TIMES PER DAY
     Route: 048
     Dates: start: 20071101, end: 20071103
  3. XYZAL [Suspect]
     Indication: PRURITUS
     Dosage: 5MG PER DAY
     Route: 048
     Dates: start: 20071101, end: 20071101
  4. PLUREXID [Suspect]
     Indication: FURUNCLE
     Dosage: 1APP SEE DOSAGE TEXT
     Route: 061
     Dates: start: 20071101, end: 20071102
  5. BISEPTINE [Suspect]
     Indication: FURUNCLE
     Dosage: 2APP PER DAY
     Route: 061
     Dates: start: 20071101, end: 20071102

REACTIONS (4)
  - ACUTE GENERALISED EXANTHEMATOUS PUSTULOSIS [None]
  - EOSINOPHILIA [None]
  - ERYTHEMA [None]
  - OEDEMA [None]
